FAERS Safety Report 10180189 (Version 1)
Quarter: 2014Q2

REPORT INFORMATION
  Report Type: Spontaneous
  Country: US (occurrence: US)
  Receive Date: 20140519
  Receipt Date: 20140519
  Transmission Date: 20141212
  Serious: No
  Sender: FDA-Public Use
  Company Number: US-AMGEN INC.-USASP2013086590

PATIENT
  Age: 58 Year
  Sex: Female

DRUGS (2)
  1. PROLIA [Suspect]
     Indication: PRODUCT USED FOR UNKNOWN INDICATION
     Route: 065
  2. GABAPENTIN [Concomitant]

REACTIONS (8)
  - Hypoaesthesia oral [Unknown]
  - Candida infection [Unknown]
  - Dry mouth [Unknown]
  - Cheilitis [Unknown]
  - Chapped lips [Unknown]
  - Feeling abnormal [Unknown]
  - Discomfort [Unknown]
  - Urticaria [Unknown]
